FAERS Safety Report 5272857-6 (Version None)
Quarter: 2007Q1

REPORT INFORMATION
  Report Type: 
  Country: None (occurrence: None)
  Receive Date: 20070322
  Receipt Date: 20070315
  Transmission Date: 20070707
  Serious: Yes (Hospitalization)
  Sender: FDA-Public Use
  Company Number: 2007AP01398

PATIENT
  Age: 24872 Day
  Sex: Male

DRUGS (11)
  1. OMEPRAL [Suspect]
     Indication: REFLUX OESOPHAGITIS
     Route: 048
     Dates: start: 20070203, end: 20070220
  2. DOPS [Concomitant]
     Indication: PROCEDURAL HYPOTENSION
     Route: 048
     Dates: start: 20060918
  3. ONEALFA [Concomitant]
     Indication: RENAL OSTEODYSTROPHY
     Route: 048
     Dates: start: 20021208
  4. ASPIRIN [Concomitant]
     Indication: ATRIAL FIBRILLATION
     Route: 048
     Dates: start: 20030616
  5. TICLOPIDINE HCL [Concomitant]
     Indication: ARTERIAL OCCLUSIVE DISEASE
     Route: 048
     Dates: start: 20030602
  6. MARZULENE-S [Concomitant]
     Route: 048
  7. NEUROVITAN [Concomitant]
     Route: 048
  8. URSO [Concomitant]
     Route: 048
  9. PRECIPITATED CALCIUM CARBONATE [Concomitant]
     Indication: HYPERPHOSPHATAEMIA
     Route: 048
     Dates: start: 20030714
  10. RISUMIC [Concomitant]
     Indication: PROCEDURAL HYPOTENSION
     Route: 048
     Dates: start: 20030714
  11. HALFDIGOXIN [Concomitant]
     Route: 048

REACTIONS (1)
  - DISORIENTATION [None]
